FAERS Safety Report 8910365 (Version 2)
Quarter: 2013Q1

REPORT INFORMATION
  Report Type: Spontaneous
  Country: US (occurrence: US)
  Receive Date: 20121115
  Receipt Date: 20130125
  Transmission Date: 20140127
  Serious: No
  Sender: FDA-Public Use
  Company Number: US-BIOGENIDEC-2012BI051619

PATIENT
  Age: 37 Year
  Sex: Female

DRUGS (6)
  1. AVONEX [Suspect]
     Indication: MULTIPLE SCLEROSIS
     Route: 030
     Dates: start: 20121011, end: 20121017
  2. AVONEX [Suspect]
     Indication: MULTIPLE SCLEROSIS
     Route: 030
     Dates: start: 20121018, end: 20121024
  3. AVONEX [Suspect]
     Indication: MULTIPLE SCLEROSIS
     Route: 030
     Dates: start: 20121025, end: 20121031
  4. AVONEX [Suspect]
     Indication: MULTIPLE SCLEROSIS
     Route: 030
     Dates: start: 20121101, end: 20121102
  5. AVONEX [Suspect]
     Indication: MULTIPLE SCLEROSIS
     Route: 030
     Dates: start: 20121109, end: 20121109
  6. ALIVE [Concomitant]
     Indication: PREMEDICATION

REACTIONS (11)
  - Gait disturbance [Recovered/Resolved]
  - Tremor [Recovered/Resolved]
  - Blood potassium decreased [Unknown]
  - Photosensitivity reaction [Not Recovered/Not Resolved]
  - Abasia [Recovered/Resolved]
  - Balance disorder [Not Recovered/Not Resolved]
  - Palpitations [Recovered/Resolved]
  - Anxiety [Recovered/Resolved]
  - White blood cell count decreased [Unknown]
  - Body temperature increased [Recovered/Resolved]
  - Muscle spasms [Not Recovered/Not Resolved]
